FAERS Safety Report 12492494 (Version 2)
Quarter: 2016Q3

REPORT INFORMATION
  Report Type: Report from Study
  Country: US (occurrence: US)
  Receive Date: 20160623
  Receipt Date: 20160715
  Transmission Date: 20161109
  Serious: Yes (Life-Threatening, Hospitalization, Other)
  Sender: FDA-Public Use
  Company Number: US-GILEAD-2016-0220287

PATIENT
  Age: 47 Year
  Sex: Male
  Weight: 85.71 kg

DRUGS (3)
  1. AMBRISENTAN [Suspect]
     Active Substance: AMBRISENTAN
     Indication: HIV INFECTION
  2. TYVASO [Concomitant]
     Active Substance: TREPROSTINIL
  3. AMBRISENTAN [Suspect]
     Active Substance: AMBRISENTAN
     Indication: PULMONARY HYPERTENSION
     Dosage: 5 MG, QD
     Route: 048
     Dates: start: 20121112

REACTIONS (5)
  - Hypoxia [Recovered/Resolved]
  - Bronchial secretion retention [Unknown]
  - Dyspnoea [Recovered/Resolved]
  - Procedural pain [Unknown]
  - Toxic goitre [Recovered/Resolved]
